FAERS Safety Report 4977898-1 (Version None)
Quarter: 2006Q2

REPORT INFORMATION
  Report Type: 
  Country: None (occurrence: None)
  Receive Date: 20060414
  Receipt Date: 20060407
  Transmission Date: 20061013
  Serious: Yes (Death)
  Sender: FDA-Public Use
  Company Number: S06-SWI-01204-01

PATIENT
  Age: 74 Year
  Sex: Male

DRUGS (1)
  1. CITALOPRAM HYDROBROMIDE [Suspect]
     Indication: DEPRESSION
     Dosage: 80 MG QD PO
     Route: 048
     Dates: start: 20040901, end: 20050101

REACTIONS (3)
  - ACCIDENT [None]
  - HYPOMANIA [None]
  - OVERDOSE [None]
